FAERS Safety Report 9510787 (Version 1)
Quarter: 2013Q3

REPORT INFORMATION
  Report Type: Spontaneous
  Country: US (occurrence: US)
  Receive Date: 20130910
  Receipt Date: 20130910
  Transmission Date: 20140515
  Serious: No
  Sender: FDA-Public Use
  Company Number: US-009507513-1309USA002433

PATIENT
  Age: 54 Year
  Sex: Female

DRUGS (2)
  1. PEGINTRON [Suspect]
     Dosage: REDIPEN 1J KIT 150Y
     Route: 058
     Dates: start: 201304
  2. VICTRELIS [Suspect]
     Dosage: UNK

REACTIONS (4)
  - Drug dose omission [Unknown]
  - Incorrect product storage [Unknown]
  - No adverse event [Unknown]
  - Drug dose omission [Unknown]
